FAERS Safety Report 7817315-7 (Version None)
Quarter: 2011Q4

REPORT INFORMATION
  Report Type: 
  Country: None (occurrence: None)
  Receive Date: 20111013
  Receipt Date: 20110930
  Transmission Date: 20120403
  Serious: Yes (Other)
  Sender: FDA-Public Use
  Company Number: 2011P1008745

PATIENT
  Age: 74 Year
  Sex: Female
  Weight: 68.0396 kg

DRUGS (12)
  1. TIMOLOL EYE DROPS [Concomitant]
  2. LOSARTAN POTASSIUM [Concomitant]
  3. VITAMIN D [Concomitant]
  4. PRAVASTATIN [Concomitant]
  5. LATANOPROST EYE DROPS [Concomitant]
  6. TRILEPTAL [Concomitant]
  7. VERAPAMIL [Concomitant]
  8. WARFARIN SODIUM [Suspect]
     Indication: CARDIAC VALVE PROSTHESIS USER
     Dosage: 5 MG;QD 4 DAYS/WK;PO
     Route: 048
     Dates: start: 20060101, end: 20110905
  9. WARFARIN SODIUM [Suspect]
     Indication: CARDIAC VALVE PROSTHESIS USER
     Dosage: 5 MG;QD 4 DAYS/WK;PO
     Route: 048
     Dates: start: 20110907
  10. WARFARIN SODIUM [Suspect]
     Indication: CARDIAC VALVE PROSTHESIS USER
     Dosage: 2.5MG;QD 3 DAYS/WK;PO
     Route: 048
     Dates: start: 20110907
  11. WARFARIN SODIUM [Suspect]
     Indication: CARDIAC VALVE PROSTHESIS USER
     Dosage: 2.5MG;QD 3 DAYS/WK;PO
     Route: 048
     Dates: start: 20060101, end: 20110905
  12. METOPROLOL TARTRATE [Concomitant]

REACTIONS (4)
  - INTERNATIONAL NORMALISED RATIO INCREASED [None]
  - PERIODONTAL DISEASE [None]
  - DENTAL CARIES [None]
  - DEVICE BREAKAGE [None]
